FAERS Safety Report 24440813 (Version 2)
Quarter: 2024Q4

REPORT INFORMATION
  Report Type: Spontaneous
  Country: PT (occurrence: PT)
  Receive Date: 20241016
  Receipt Date: 20241224
  Transmission Date: 20250115
  Serious: Yes (Life-Threatening, Other)
  Sender: AUROBINDO
  Company Number: PT-002147023-NVSC2024PT192697

PATIENT
  Age: 41 Year
  Sex: Female
  Weight: 65 kg

DRUGS (4)
  1. FINGOLIMOD [Suspect]
     Active Substance: FINGOLIMOD
     Indication: Relapsing-remitting multiple sclerosis
     Dosage: UNK
     Route: 065
     Dates: start: 2020, end: 2023
  2. OFATUMUMAB [Suspect]
     Active Substance: OFATUMUMAB
     Indication: Relapsing-remitting multiple sclerosis
     Dosage: UNK
     Route: 065
     Dates: start: 2023, end: 2024
  3. DALFAMPRIDINE [Concomitant]
     Active Substance: DALFAMPRIDINE
     Indication: Product used for unknown indication
     Dosage: UNK
     Route: 065
  4. SOLIFENACIN [Concomitant]
     Active Substance: SOLIFENACIN
     Indication: Product used for unknown indication
     Dosage: UNK
     Route: 065

REACTIONS (21)
  - Paraparesis [Recovering/Resolving]
  - Paresis [Recovering/Resolving]
  - Multiple sclerosis [Unknown]
  - Multiple sclerosis relapse [Unknown]
  - Hemiparesis [Recovering/Resolving]
  - Dyspnoea [Unknown]
  - Gait disturbance [Unknown]
  - Terminal insomnia [Unknown]
  - Movement disorder [Unknown]
  - Muscle spasms [Unknown]
  - Mental fatigue [Recovering/Resolving]
  - Nocturia [Unknown]
  - Fatigue [Unknown]
  - Migraine [Unknown]
  - Mobility decreased [Unknown]
  - Constipation [Unknown]
  - Aphonia [Unknown]
  - Central nervous system lesion [Unknown]
  - Urinary tract infection [Unknown]
  - Bladder dysfunction [Unknown]
  - Emotional distress [Recovering/Resolving]

NARRATIVE: CASE EVENT DATE: 20231201
